FAERS Safety Report 8893129 (Version 2)
Quarter: 2013Q1

REPORT INFORMATION
  Report Type: Spontaneous
  Country: US (occurrence: None)
  Receive Date: 20121101
  Receipt Date: 20121119
  Transmission Date: 20140127
  Serious: Yes (Other)
  Sender: FDA-Public Use
  Company Number: 2012SA076623

PATIENT
  Age: 51 Year
  Sex: Female
  Weight: 64.54 kg

DRUGS (1)
  1. ICY HOT MEDICATED NO MESS APPLICATOR [Suspect]
     Indication: MUSCULOSKELETAL STIFFNESS
     Route: 003
     Dates: start: 20121016, end: 20121016

REACTIONS (5)
  - Application site reaction [None]
  - Application site burn [None]
  - Application site bruise [None]
  - Application site vesicles [None]
  - Application site erythema [None]
